FAERS Safety Report 14614551 (Version 1)
Quarter: 2018Q1

REPORT INFORMATION
  Report Type: Spontaneous
  Country: US (occurrence: US)
  Receive Date: 20180308
  Receipt Date: 20180308
  Transmission Date: 20180509
  Serious: No
  Sender: FDA-Public Use
  Company Number: US-PERRIGO-17US026472

PATIENT
  Age: 68 Year
  Sex: Male
  Weight: 74.83 kg

DRUGS (1)
  1. NICOTINE POLACRILEX [Suspect]
     Active Substance: NICOTINE
     Indication: TOBACCO USER
     Dosage: 2 MG, PRN
     Route: 002
     Dates: start: 20170830, end: 20170831

REACTIONS (2)
  - Dental discomfort [Not Recovered/Not Resolved]
  - Off label use [Recovered/Resolved]

NARRATIVE: CASE EVENT DATE: 20170830
